FAERS Safety Report 24083440 (Version 1)
Quarter: 2024Q3

REPORT INFORMATION
  Report Type: Spontaneous
  Country: CN (occurrence: CN)
  Receive Date: 20240712
  Receipt Date: 20240712
  Transmission Date: 20241017
  Serious: Yes (Hospitalization, Other)
  Sender: IPCA
  Company Number: CN-IPCA LABORATORIES LIMITED-IPC-2024-CN-001724

PATIENT

DRUGS (1)
  1. WARFARIN [Suspect]
     Active Substance: WARFARIN
     Indication: Aortic valve replacement
     Dosage: UNK
     Route: 065

REACTIONS (2)
  - Haematuria [Recovering/Resolving]
  - Nephropathy [Recovering/Resolving]
